FAERS Safety Report 5121632-1 (Version None)
Quarter: 2006Q4

REPORT INFORMATION
  Report Type: 
  Country: None (occurrence: None)
  Receive Date: 20061003
  Receipt Date: 20060926
  Transmission Date: 20070319
  Serious: Yes (Hospitalization, Other)
  Sender: FDA-Public Use
  Company Number: 2006115703

PATIENT
  Age: 72 Year
  Sex: Female

DRUGS (4)
  1. GENOTROPIN [Suspect]
     Indication: HYPOPITUITARISM
     Dosage: 0.2MG (DAILY), SUBCUTANEOUS
     Route: 058
     Dates: start: 20060313, end: 20060906
  2. HYDROCORTISONE ACETATE [Concomitant]
  3. LEVOTHYROXINE SODIUM [Concomitant]
  4. DHEA (PRASTERONE) [Concomitant]

REACTIONS (1)
  - DIABETES INSIPIDUS [None]
